FAERS Safety Report 4728644-8 (Version None)
Quarter: 2005Q3

REPORT INFORMATION
  Report Type: 
  Country: None (occurrence: None)
  Receive Date: 20050727
  Receipt Date: 20050713
  Transmission Date: 20060218
  Serious: Yes (Death)
  Sender: FDA-Public Use
  Company Number: US-2005-014170

PATIENT
  Age: 46 Year
  Sex: Female

DRUGS (1)
  1. BETASERON [Suspect]
     Route: 058
     Dates: start: 19931206, end: 20040515

REACTIONS (1)
  - DEATH [None]
